FAERS Safety Report 24707772 (Version 1)
Quarter: 2024Q4

REPORT INFORMATION
  Report Type: Spontaneous
  Country: US (occurrence: US)
  Receive Date: 20241206
  Receipt Date: 20241206
  Transmission Date: 20250115
  Serious: No
  Sender: NOVO NORDISK
  Company Number: US-NOVOPROD-1143919

PATIENT
  Sex: Male
  Weight: 108.84 kg

DRUGS (1)
  1. NOVOLIN 70/30 [Suspect]
     Active Substance: INSULIN HUMAN
     Indication: Product used for unknown indication
     Dosage: UNK
     Route: 058
     Dates: start: 2022

REACTIONS (5)
  - Hunger [Unknown]
  - Increased appetite [Unknown]
  - Sleep disorder [Unknown]
  - Weight increased [Unknown]
  - Intentional product misuse [Unknown]
